FAERS Safety Report 11751899 (Version 2)
Quarter: 2015Q4

REPORT INFORMATION
  Report Type: Spontaneous
  Country: US (occurrence: US)
  Receive Date: 20151118
  Receipt Date: 20151118
  Transmission Date: 20160304
  Serious: Yes (Death, Other)
  Sender: FDA-Public Use
  Company Number: PHHY2015US147050

PATIENT
  Age: 64 Year
  Sex: Male

DRUGS (13)
  1. DOXORUBICIN [Suspect]
     Active Substance: DOXORUBICIN
     Indication: SPLENOMEGALY
  2. METHOTREXATE [Suspect]
     Active Substance: METHOTREXATE
     Indication: LYMPHADENOPATHY
     Route: 065
     Dates: start: 201105
  3. METHOTREXATE [Suspect]
     Active Substance: METHOTREXATE
     Indication: SPLENOMEGALY
  4. VINCRISTINE [Suspect]
     Active Substance: VINCRISTINE
     Indication: SPLENOMEGALY
  5. DEXAMETHASONE. [Suspect]
     Active Substance: DEXAMETHASONE
     Indication: SPLENOMEGALY
  6. CYTARABINE. [Suspect]
     Active Substance: CYTARABINE
     Indication: MYELOID LEUKAEMIA
     Route: 065
     Dates: start: 201109
  7. CYCLOPHOSPHAMIDE. [Suspect]
     Active Substance: CYCLOPHOSPHAMIDE
     Indication: LYMPHADENOPATHY
     Route: 065
     Dates: start: 201105
  8. CYCLOPHOSPHAMIDE. [Suspect]
     Active Substance: CYCLOPHOSPHAMIDE
     Indication: SPLENOMEGALY
  9. VINCRISTINE [Suspect]
     Active Substance: VINCRISTINE
     Indication: LYMPHADENOPATHY
     Route: 065
     Dates: start: 201105
  10. CICLOSPORIN [Suspect]
     Active Substance: CYCLOSPORINE
     Indication: ACUTE MYELOID LEUKAEMIA
     Route: 065
     Dates: start: 201109
  11. DEXAMETHASONE. [Suspect]
     Active Substance: DEXAMETHASONE
     Indication: LYMPHADENOPATHY
     Route: 065
     Dates: start: 201105
  12. DOXORUBICIN [Suspect]
     Active Substance: DOXORUBICIN
     Indication: LYMPHADENOPATHY
     Route: 065
     Dates: start: 201105
  13. DAUNORUBICIN [Suspect]
     Active Substance: DAUNORUBICIN
     Indication: ACUTE MYELOID LEUKAEMIA
     Route: 065
     Dates: start: 201109

REACTIONS (7)
  - Clostridium difficile colitis [Unknown]
  - Bacteraemia [Unknown]
  - Acute myeloid leukaemia [Fatal]
  - Febrile neutropenia [Unknown]
  - Disease progression [Fatal]
  - Drug ineffective [Fatal]
  - Adrenal insufficiency [Unknown]
